FAERS Safety Report 9411863 (Version 1)
Quarter: 2013Q3

REPORT INFORMATION
  Report Type: Spontaneous
  Country: JP (occurrence: JP)
  Receive Date: 20130722
  Receipt Date: 20130722
  Transmission Date: 20140515
  Serious: Yes (Other)
  Sender: FDA-Public Use
  Company Number: PHHY2013JP077224

PATIENT
  Age: 72 Year
  Sex: Male

DRUGS (1)
  1. DIOVAN [Suspect]
     Route: 048

REACTIONS (9)
  - Cardiac disorder [Unknown]
  - Cardiovascular disorder [Unknown]
  - Cerebral infarction [Unknown]
  - Speech disorder [Unknown]
  - Memory impairment [Unknown]
  - Glycosuria [Unknown]
  - Cataract [Unknown]
  - Cervical spinal stenosis [Unknown]
  - Back pain [Unknown]
